FAERS Safety Report 9687687 (Version 2)
Quarter: 2013Q4

REPORT INFORMATION
  Report Type: Spontaneous
  Country: US (occurrence: US)
  Receive Date: 20131114
  Receipt Date: 20131210
  Transmission Date: 20140711
  Serious: No
  Sender: FDA-Public Use
  Company Number: US-PFIZER INC-2013324266

PATIENT
  Sex: Female

DRUGS (3)
  1. PRISTIQ [Suspect]
     Dosage: UNK
  2. ALDACTONE [Suspect]
     Dosage: UNK
  3. ARTHROTEC [Suspect]
     Dosage: UNK

REACTIONS (2)
  - Headache [Unknown]
  - Stress [Unknown]
